FAERS Safety Report 4519089-4 (Version None)
Quarter: 2004Q4

REPORT INFORMATION
  Report Type: 
  Country: None (occurrence: None)
  Receive Date: 20041206
  Receipt Date: 20041129
  Transmission Date: 20050328
  Serious: Yes (Other)
  Sender: FDA-Public Use
  Company Number: PHBS2004JP15899

PATIENT
  Age: 65 Year
  Sex: Female

DRUGS (4)
  1. STARLIX [Suspect]
     Indication: DIABETES MELLITUS
     Dosage: 270 MG, QD
     Route: 048
  2. FLUITRAN [Concomitant]
     Dates: end: 20041107
  3. ALLOZYM [Concomitant]
     Dates: end: 20041107
  4. BLOPRESS [Concomitant]
     Dates: end: 20041107

REACTIONS (7)
  - ALANINE AMINOTRANSFERASE INCREASED [None]
  - ASPARTATE AMINOTRANSFERASE INCREASED [None]
  - DEHYDRATION [None]
  - GAMMA-GLUTAMYLTRANSFERASE INCREASED [None]
  - HYPERGLYCAEMIA [None]
  - LIVER DISORDER [None]
  - RASH PRURITIC [None]
